FAERS Safety Report 18044802 (Version 4)
Quarter: 2022Q3

REPORT INFORMATION
  Report Type: Report from Study
  Country: CA (occurrence: CA)
  Receive Date: 20200720
  Receipt Date: 20220711
  Transmission Date: 20221027
  Serious: Yes (Other)
  Sender: FDA-Public Use
  Company Number: CA-GLAXOSMITHKLINE-CA2020AMR134045

PATIENT

DRUGS (1)
  1. MEPOLIZUMAB [Suspect]
     Active Substance: MEPOLIZUMAB
     Indication: Asthma
     Dosage: 100 MG, Z, 1 MONTHS
     Route: 042
     Dates: start: 20181019

REACTIONS (7)
  - Haematological malignancy [Unknown]
  - Skin cancer [Unknown]
  - Limb injury [Not Recovered/Not Resolved]
  - Impaired driving ability [Unknown]
  - Pain in extremity [Unknown]
  - Pain [Unknown]
  - Social problem [Unknown]
